FAERS Safety Report 7727300-1 (Version None)
Quarter: 2011Q3

REPORT INFORMATION
  Report Type: 
  Country: None (occurrence: None)
  Receive Date: 20110902
  Receipt Date: 20110823
  Transmission Date: 20111222
  Serious: Yes (Other)
  Sender: FDA-Public Use
  Company Number: JP-PFIZER INC-2011204541

PATIENT
  Sex: Female

DRUGS (2)
  1. WARFARIN [Concomitant]
  2. CELECOXIB [Suspect]
     Route: 048

REACTIONS (1)
  - INTERNATIONAL NORMALISED RATIO INCREASED [None]
